FAERS Safety Report 9502085 (Version 1)
Quarter: 2013Q3

REPORT INFORMATION
  Report Type: Spontaneous
  Country: US (occurrence: US)
  Receive Date: 20130905
  Receipt Date: 20130905
  Transmission Date: 20140515
  Serious: Yes (Hospitalization, Other)
  Sender: FDA-Public Use
  Company Number: US-ABBOTT-13P-163-1140421-00

PATIENT
  Age: 64 Year
  Sex: Male
  Weight: 99.88 kg

DRUGS (6)
  1. HUMIRA [Suspect]
     Indication: CROHN^S DISEASE
     Route: 058
     Dates: start: 20120519, end: 20120519
  2. HUMIRA [Suspect]
     Route: 058
     Dates: start: 20130603, end: 20130603
  3. HUMIRA [Suspect]
     Route: 058
     Dates: start: 20130617
  4. EVEROLIMUS [Suspect]
     Indication: PRODUCT USED FOR UNKNOWN INDICATION
     Dates: start: 20130531
  5. LIPITOR [Concomitant]
     Indication: BLOOD CHOLESTEROL INCREASED
  6. FINASTERIDE [Concomitant]
     Indication: BENIGN PROSTATIC HYPERPLASIA

REACTIONS (9)
  - Coronary artery occlusion [Recovered/Resolved]
  - Fatigue [Unknown]
  - Chest pain [Recovered/Resolved]
  - Chest discomfort [Recovered/Resolved]
  - Myocardial infarction [Recovered/Resolved]
  - Electrocardiogram abnormal [Not Recovered/Not Resolved]
  - Cardiac enzymes increased [Not Recovered/Not Resolved]
  - Immunosuppression [Unknown]
  - White blood cell count decreased [Not Recovered/Not Resolved]
